FAERS Safety Report 25776084 (Version 1)
Quarter: 2025Q3

REPORT INFORMATION
  Report Type: Spontaneous
  Country: CN (occurrence: CN)
  Receive Date: 20250909
  Receipt Date: 20250909
  Transmission Date: 20251020
  Serious: Yes (Hospitalization)
  Sender: ROCHE
  Company Number: CN-ROCHE-10000381168

PATIENT
  Age: 48 Year
  Sex: Female

DRUGS (2)
  1. ITOVEBI [Suspect]
     Active Substance: INAVOLISIB
     Indication: Breast cancer
     Route: 048
     Dates: start: 20250814, end: 20250821
  2. ITOVEBI [Suspect]
     Active Substance: INAVOLISIB
     Route: 048

REACTIONS (2)
  - Blood glucose increased [Recovering/Resolving]
  - Ketosis [Recovering/Resolving]

NARRATIVE: CASE EVENT DATE: 20250816
